FAERS Safety Report 12631819 (Version 3)
Quarter: 2016Q3

REPORT INFORMATION
  Report Type: Spontaneous
  Country: US (occurrence: US)
  Receive Date: 20160808
  Receipt Date: 20160808
  Transmission Date: 20161109
  Serious: No
  Sender: FDA-Public Use
  Company Number: US-BEH-2016061166

PATIENT
  Sex: Female
  Weight: 76 kg

DRUGS (27)
  1. LMX [Concomitant]
     Active Substance: LIDOCAINE
  2. LIDOCAINE/PRILOCAINE [Concomitant]
     Active Substance: LIDOCAINE\PRILOCAINE
  3. FLONASE [Concomitant]
     Active Substance: FLUTICASONE PROPIONATE
  4. CLARITIN [Concomitant]
     Active Substance: LORATADINE
  5. EPIPEN [Concomitant]
     Active Substance: EPINEPHRINE
  6. LEVAQUIN [Concomitant]
     Active Substance: LEVOFLOXACIN
  7. VITAMIN D [Concomitant]
     Active Substance: CHOLECALCIFEROL
  8. PULMICORT TURBUHALER [Concomitant]
     Active Substance: BUDESONIDE
  9. NEXIUM [Concomitant]
     Active Substance: ESOMEPRAZOLE MAGNESIUM
  10. CREON [Concomitant]
     Active Substance: PANCRELIPASE AMYLASE\PANCRELIPASE LIPASE\PANCRELIPASE PROTEASE
  11. AZELASTINE [Concomitant]
     Active Substance: AZELASTINE
  12. PREDNISONE. [Concomitant]
     Active Substance: PREDNISONE
  13. CEFDINIR. [Concomitant]
     Active Substance: CEFDINIR
  14. SINGULAIR [Concomitant]
     Active Substance: MONTELUKAST SODIUM
  15. WELLBUTRIN [Concomitant]
     Active Substance: BUPROPION HYDROCHLORIDE
  16. OXYCONTIN [Concomitant]
     Active Substance: OXYCODONE HYDROCHLORIDE
  17. HIZENTRA [Suspect]
     Active Substance: HUMAN IMMUNOGLOBULIN G
     Indication: IMMUNODEFICIENCY COMMON VARIABLE
     Route: 058
     Dates: start: 20131204
  18. AVELOX [Concomitant]
     Active Substance: MOXIFLOXACIN HYDROCHLORIDE
  19. CARDIZEM [Concomitant]
     Active Substance: DILTIAZEM HYDROCHLORIDE
  20. BISOPROLOL [Concomitant]
     Active Substance: BISOPROLOL
  21. ALBUTEROL. [Concomitant]
     Active Substance: ALBUTEROL
  22. ASPIRIN. [Concomitant]
     Active Substance: ASPIRIN
  23. ACETAMINOPHEN. [Concomitant]
     Active Substance: ACETAMINOPHEN
  24. DIPHENHYDRAMINE. [Concomitant]
     Active Substance: DIPHENHYDRAMINE
  25. MUCINEX [Concomitant]
     Active Substance: GUAIFENESIN
  26. LOSARTAN. [Concomitant]
     Active Substance: LOSARTAN
  27. QVAR [Concomitant]
     Active Substance: BECLOMETHASONE DIPROPIONATE

REACTIONS (2)
  - Sinusitis [Unknown]
  - Bronchitis [Unknown]
